FAERS Safety Report 9031041 (Version 1)
Quarter: 2013Q1

REPORT INFORMATION
  Report Type: Spontaneous
  Country: BR (occurrence: BR)
  Receive Date: 20130123
  Receipt Date: 20130123
  Transmission Date: 20140127
  Serious: Yes (Death)
  Sender: FDA-Public Use
  Company Number: BR-PFIZER INC-2013027588

PATIENT
  Age: 86 Year
  Sex: Female
  Weight: 65 kg

DRUGS (1)
  1. LIPITOR [Suspect]
     Dosage: 40 MG, UNK
     Route: 048
     Dates: end: 2007

REACTIONS (1)
  - Infarction [Fatal]
